FAERS Safety Report 16658711 (Version 1)
Quarter: 2019Q3

REPORT INFORMATION
  Report Type: Spontaneous
  Country: US (occurrence: US)
  Receive Date: 20190801
  Receipt Date: 20190801
  Transmission Date: 20191004
  Serious: No
  Sender: FDA-Public Use
  Company Number: US-GE HEALTHCARE LIFE SCIENCES-2019CSU000990

PATIENT
  Age: 47 Year
  Sex: Male

DRUGS (4)
  1. OMNIPAQUE [Suspect]
     Active Substance: IOHEXOL
     Indication: PAIN
  2. TRIAMCINOLONE [Concomitant]
     Active Substance: TRIAMCINOLONE
     Indication: PAIN
  3. TRIAMCINOLONE [Concomitant]
     Active Substance: TRIAMCINOLONE
     Indication: EPIDURAL ANALGESIA
     Dosage: UNK UNK, SINGLE
     Route: 008
     Dates: start: 2014, end: 2014
  4. OMNIPAQUE [Suspect]
     Active Substance: IOHEXOL
     Indication: EPIDURAL ANALGESIA
     Dosage: 3 ML, SINGLE
     Route: 008
     Dates: start: 2014, end: 2014

REACTIONS (2)
  - Off label use [Recovered/Resolved]
  - Urticaria [Unknown]

NARRATIVE: CASE EVENT DATE: 2014
